FAERS Safety Report 6010977-9 (Version None)
Quarter: 2008Q4

REPORT INFORMATION
  Report Type: 
  Country: None (occurrence: None)
  Receive Date: 20081218
  Receipt Date: 20081210
  Transmission Date: 20090506
  Serious: Yes (Hospitalization)
  Sender: FDA-Public Use
  Company Number: B0549840A

PATIENT
  Sex: Female
  Weight: 3.3 kg

DRUGS (2)
  1. DEROXAT [Suspect]
     Indication: BIPOLAR DISORDER
     Dates: end: 20080101
  2. SERESTA [Suspect]
     Indication: BIPOLAR DISORDER
     Dates: end: 20080101

REACTIONS (3)
  - DRUG EXPOSURE DURING PREGNANCY [None]
  - DRUG WITHDRAWAL SYNDROME NEONATAL [None]
  - HYPERCALCAEMIA [None]
